FAERS Safety Report 17421286 (Version 4)
Quarter: 2021Q3

REPORT INFORMATION
  Report Type: Report from Study
  Country: CO (occurrence: CO)
  Receive Date: 20200214
  Receipt Date: 20210827
  Transmission Date: 20211014
  Serious: Yes (Hospitalization, Other)
  Sender: FDA-Public Use
  Company Number: CO-ASTELLAS-2019US024573

PATIENT
  Age: 65 Year
  Sex: Female

DRUGS (19)
  1. TACROLIMUS. [Suspect]
     Active Substance: TACROLIMUS
     Dosage: 5 MG, ONCE DAILY (1 CAPSULE OF 5 MG)
     Route: 048
     Dates: end: 201912
  2. PREDNISOLONE. [Suspect]
     Active Substance: PREDNISOLONE
     Route: 048
     Dates: start: 20190529, end: 20190529
  3. AMLODIPINE [Concomitant]
     Active Substance: AMLODIPINE BESYLATE
     Indication: HYPERTENSION
     Route: 048
     Dates: start: 20150907
  4. TACROLIMUS. [Suspect]
     Active Substance: TACROLIMUS
     Route: 048
  5. PREDNISOLONE. [Suspect]
     Active Substance: PREDNISOLONE
     Route: 048
     Dates: start: 201512, end: 20190528
  6. PREDNISOLONE. [Suspect]
     Active Substance: PREDNISOLONE
     Dosage: 20 MG, ONCE DAILY (4 TABLETS)
     Route: 048
     Dates: start: 20190530
  7. TACROLIMUS. [Suspect]
     Active Substance: TACROLIMUS
     Indication: RENAL TRANSPLANT
     Dosage: 7 MG, ONCE DAILY (1 CAPSULE OF 5 MG AND 2 CAPSULES OF 1 MG)
     Route: 048
     Dates: start: 20150907
  8. PREDNISOLONE. [Suspect]
     Active Substance: PREDNISOLONE
     Indication: INFLAMMATION
     Route: 048
     Dates: start: 20150907, end: 201512
  9. CALCIUM [Concomitant]
     Active Substance: CALCIUM
     Indication: CALCIUM METABOLISM DISORDER
     Dosage: 2400 MG, UNKNOWN FREQ. (4 TABLETS)
     Route: 048
     Dates: start: 2009
  10. MYCOPHENOLATE [Concomitant]
     Active Substance: MYCOPHENOLIC ACID
     Indication: RENAL TRANSPLANT
     Route: 048
     Dates: start: 201509
  11. PREDNISOLONE. [Suspect]
     Active Substance: PREDNISOLONE
     Dosage: 15 MG, ONCE DAILY (3 TABLETS)
     Route: 048
     Dates: start: 20200123
  12. ACETAMINOPHEN. [Concomitant]
     Active Substance: ACETAMINOPHEN
     Indication: PAIN
     Route: 048
     Dates: start: 20150907
  13. ATORVASTATIN [Concomitant]
     Active Substance: ATORVASTATIN
     Indication: PRODUCT USED FOR UNKNOWN INDICATION
     Route: 048
     Dates: start: 20150906
  14. LEVOTHYROXINE. [Concomitant]
     Active Substance: LEVOTHYROXINE
     Indication: PRODUCT USED FOR UNKNOWN INDICATION
     Route: 048
     Dates: start: 20150906
  15. TACROLIMUS. [Suspect]
     Active Substance: TACROLIMUS
     Dosage: 6 MG, ONCE DAILY (1 CAPSULE OF 5 MG; 1 CAPSULE OF 1 MG)
     Route: 048
     Dates: start: 202001
  16. PREDNISOLONE. [Suspect]
     Active Substance: PREDNISOLONE
     Indication: RENAL TRANSPLANT
     Route: 048
     Dates: start: 20150906
  17. INSULIN GLARGINE [Concomitant]
     Active Substance: INSULIN GLARGINE
     Indication: DIABETES MELLITUS
     Dosage: 15 UNITS IN NIGHT
     Route: 058
     Dates: start: 20150907
  18. ESOMEPRAZOLE. [Concomitant]
     Active Substance: ESOMEPRAZOLE MAGNESIUM
     Indication: GASTRIC DISORDER
     Route: 048
     Dates: start: 20150907
  19. MYCOPHENOLATE [Concomitant]
     Active Substance: MYCOPHENOLIC ACID
     Route: 048
     Dates: start: 20190529

REACTIONS (22)
  - Delirium [Not Recovered/Not Resolved]
  - Viral infection [Recovered/Resolved]
  - Blood creatinine increased [Recovered/Resolved]
  - Complications of transplanted kidney [Recovered/Resolved]
  - Renal disorder [Recovered/Resolved]
  - Inflammation [Recovering/Resolving]
  - Anaemia [Recovering/Resolving]
  - Monoplegia [Recovering/Resolving]
  - Mental impairment [Not Recovered/Not Resolved]
  - Human polyomavirus infection [Unknown]
  - Amnesia [Unknown]
  - Vomiting [Recovered/Resolved]
  - Malnutrition [Recovering/Resolving]
  - Hemiplegia [Recovering/Resolving]
  - Hypoacusis [Recovered/Resolved]
  - Pain [Recovering/Resolving]
  - Weight increased [Not Recovered/Not Resolved]
  - Hypoaesthesia [Recovering/Resolving]
  - Tremor [Recovering/Resolving]
  - Diarrhoea [Recovered/Resolved]
  - Drug ineffective [Unknown]
  - Blood glucose increased [Recovered/Resolved]

NARRATIVE: CASE EVENT DATE: 2015
